FAERS Safety Report 9484070 (Version 2)
Quarter: 2013Q3

REPORT INFORMATION
  Report Type: Report from Study
  Country: US (occurrence: US)
  Receive Date: 20130828
  Receipt Date: 20130920
  Transmission Date: 20140515
  Serious: Yes (Hospitalization)
  Sender: FDA-Public Use
  Company Number: US-ROCHE-1266814

PATIENT
  Sex: Female

DRUGS (1)
  1. BONIVA [Suspect]
     Route: 048

REACTIONS (1)
  - Malaise [Unknown]
